FAERS Safety Report 6656781-X (Version None)
Quarter: 2010Q1

REPORT INFORMATION
  Report Type: 
  Country: None (occurrence: None)
  Receive Date: 20100329
  Receipt Date: 20100323
  Transmission Date: 20100710
  Serious: Yes (Hospitalization, Other)
  Sender: FDA-Public Use
  Company Number: US-MERCK-1003USA03789

PATIENT
  Age: 62 Year
  Sex: Female

DRUGS (21)
  1. FOSAMAX [Suspect]
     Indication: OSTEOPOROSIS
     Route: 065
     Dates: start: 19960101, end: 20030701
  2. FOSAMAX [Suspect]
     Route: 065
     Dates: start: 20030701, end: 20100309
  3. HYDROXYZINE [Concomitant]
     Route: 065
  4. ALLEGRA [Concomitant]
     Route: 065
  5. THEOPHYLLINE [Concomitant]
     Route: 065
  6. CYMBALTA [Concomitant]
     Route: 065
  7. XANTHINE [Concomitant]
     Route: 065
  8. MAXALT [Concomitant]
     Route: 048
  9. RESTASIS [Concomitant]
     Route: 065
  10. TYLENOL-500 [Concomitant]
     Route: 065
  11. CALCIUM (UNSPECIFIED) [Concomitant]
     Route: 065
  12. VITAMIN D (UNSPECIFIED) [Concomitant]
     Route: 065
  13. FLOVENT [Concomitant]
     Route: 065
  14. FLONASE [Concomitant]
     Route: 065
  15. RESTORIL [Concomitant]
     Route: 065
  16. SPIRIVA [Concomitant]
     Route: 065
  17. NAPROSYN [Concomitant]
     Route: 065
  18. ZANTAC [Concomitant]
     Route: 065
  19. LASIX [Concomitant]
     Route: 065
  20. POTASSIUM (UNSPECIFIED) [Concomitant]
     Route: 065
  21. VITAMINS (UNSPECIFIED) [Concomitant]
     Route: 065

REACTIONS (1)
  - HIP FRACTURE [None]
